FAERS Safety Report 6387925-5 (Version None)
Quarter: 2009Q4

REPORT INFORMATION
  Report Type: 
  Country: None (occurrence: None)
  Receive Date: 20091005
  Receipt Date: 20090923
  Transmission Date: 20100525
  Serious: Yes (Hospitalization)
  Sender: FDA-Public Use
  Company Number: CN-NOVOPROD-291273

PATIENT
  Age: 55 Year
  Sex: Female

DRUGS (2)
  1. NOVOLIN R [Suspect]
     Indication: TYPE 1 DIABETES MELLITUS
     Dosage: 42 IU, QD (24+18)
     Route: 058
     Dates: start: 20020101
  2. NOVOLIN R [Suspect]
     Dosage: 42 IU, QD
     Dates: start: 20090821

REACTIONS (8)
  - BLOOD GLUCOSE INCREASED [None]
  - DEVICE LEAKAGE [None]
  - DIZZINESS [None]
  - DYSPNOEA [None]
  - FATIGUE [None]
  - HYPERGLYCAEMIA [None]
  - PRODUCT QUALITY ISSUE [None]
  - VISUAL IMPAIRMENT [None]
